FAERS Safety Report 5709213-X (Version None)
Quarter: 2008Q2

REPORT INFORMATION
  Report Type: 
  Country: None (occurrence: None)
  Receive Date: 20080418
  Receipt Date: 20080411
  Transmission Date: 20081010
  Serious: Yes (Hospitalization, Other)
  Sender: FDA-Public Use
  Company Number: BR-ASTRAZENECA-2008UW07594

PATIENT
  Age: 74 Year
  Sex: Female
  Weight: 40 kg

DRUGS (5)
  1. SEROQUEL [Suspect]
     Indication: DEMENTIA ALZHEIMER'S TYPE
     Dosage: }2 YEARS
     Route: 048
     Dates: end: 20071001
  2. SEROQUEL [Suspect]
     Dosage: }2 YEARS
     Route: 048
     Dates: start: 20071001, end: 20080201
  3. SEROQUEL [Suspect]
     Dosage: }2 YEARS
     Route: 048
     Dates: start: 20080301, end: 20080301
  4. EXELON [Concomitant]
     Indication: DEMENTIA ALZHEIMER'S TYPE
     Dates: end: 20070101
  5. RIVOTRIL [Concomitant]
     Indication: DEMENTIA ALZHEIMER'S TYPE
     Dates: end: 20070101

REACTIONS (5)
  - ANAEMIA [None]
  - DIARRHOEA [None]
  - NOSOCOMIAL INFECTION [None]
  - SERUM SEROTONIN INCREASED [None]
  - TACHYCARDIA [None]
